FAERS Safety Report 21726751 (Version 1)
Quarter: 2022Q4

REPORT INFORMATION
  Report Type: Spontaneous
  Country: JP (occurrence: JP)
  Receive Date: 20221214
  Receipt Date: 20221214
  Transmission Date: 20230113
  Serious: Yes (Other)
  Sender: FDA-Public Use
  Company Number: JP-BRISTOL-MYERS SQUIBB COMPANY-2022-152924

PATIENT

DRUGS (2)
  1. ELIQUIS [Suspect]
     Active Substance: APIXABAN
     Indication: Embolism venous
     Dosage: 10 X 2 TIMES (LOADING DOSE)
  2. ELIQUIS [Suspect]
     Active Substance: APIXABAN
     Dosage: MAINTENANCE DOSE

REACTIONS (1)
  - Urinary bladder haemorrhage [Recovered/Resolved]
